FAERS Safety Report 5030826-5 (Version None)
Quarter: 2006Q2

REPORT INFORMATION
  Report Type: 
  Country: None (occurrence: None)
  Receive Date: 20060619
  Receipt Date: 20060606
  Transmission Date: 20061013
  Serious: Yes (Hospitalization)
  Sender: FDA-Public Use
  Company Number: 200610660BYL

PATIENT
  Age: 93 Year
  Sex: Female

DRUGS (9)
  1. AVELOX [Suspect]
     Indication: BRONCHITIS ACUTE
     Dosage: 200 MG, TOTAL DAILY, ORAL
     Route: 048
     Dates: start: 20060509
  2. LINCOMYCIN HYDROCHLORIDE [Suspect]
     Indication: BRONCHITIS ACUTE
     Dosage: 600 MG, QD, INTRAMUSCULAR
     Route: 030
     Dates: start: 20060509, end: 20060510
  3. CARNACULIN [PANCREAS EXTRACT] [Concomitant]
  4. NORVASC [Concomitant]
  5. MEDICON [DEXTROMETHORPHAN HYDROBROMIDE] [Concomitant]
  6. THEOLONG [Concomitant]
  7. SULPYRINE [Concomitant]
  8. CORPHYLLIN [Concomitant]
  9. COUGHNOL [Concomitant]

REACTIONS (8)
  - ANURIA [None]
  - DEHYDRATION [None]
  - DIARRHOEA [None]
  - LIVER DISORDER [None]
  - PYREXIA [None]
  - RENAL FAILURE [None]
  - VOMITING [None]
  - WHEEZING [None]
